FAERS Safety Report 7825796-8 (Version None)
Quarter: 2011Q4

REPORT INFORMATION
  Report Type: 
  Country: None (occurrence: None)
  Receive Date: 20111019
  Receipt Date: 20100208
  Transmission Date: 20120403
  Serious: No
  Sender: FDA-Public Use
  Company Number: US-BAYER-201013409NA

PATIENT
  Age: 63 Year
  Sex: Male

DRUGS (4)
  1. MACROBID [Concomitant]
     Indication: URINARY TRACT INFECTION ENTEROCOCCAL
     Dates: start: 20091207
  2. ZITHROMAX [Concomitant]
     Indication: URINARY TRACT INFECTION
     Dates: start: 20100202
  3. MACROBID [Concomitant]
  4. CIPROFLOXACIN [Suspect]
     Indication: URINARY TRACT INFECTION ENTEROCOCCAL
     Dates: start: 20091217, end: 20091227

REACTIONS (3)
  - DRUG INEFFECTIVE [None]
  - URINARY TRACT INFECTION ENTEROCOCCAL [None]
  - HAEMATURIA [None]
